FAERS Safety Report 10376012 (Version 4)
Quarter: 2015Q3

REPORT INFORMATION
  Report Type: Spontaneous
  Country: US (occurrence: US)
  Receive Date: 20140811
  Receipt Date: 20150928
  Transmission Date: 20151125
  Serious: Yes (Hospitalization, Other)
  Sender: FDA-Public Use
  Company Number: US-GLAXOSMITHKLINE-A0906913A

PATIENT
  Age: 40 Year
  Sex: Male

DRUGS (5)
  1. THYROXIN [Concomitant]
     Active Substance: LEVOTHYROXINE
  2. VENTOLIN [Suspect]
     Active Substance: ALBUTEROL SULFATE
     Indication: ASTHMA
     Dosage: 90MCG 1 PUFF, PRN
     Route: 055
     Dates: start: 1999
  3. TRIAMCINOLONE OINTMENT [Concomitant]
  4. VENTOLIN [Suspect]
     Active Substance: ALBUTEROL SULFATE
     Dosage: UNK, U
     Route: 065
  5. ADVAIR HFA [Suspect]
     Active Substance: FLUTICASONE PROPIONATE\SALMETEROL XINAFOATE
     Indication: ASTHMA
     Dosage: 500/50;250/50 MCG
     Route: 055
     Dates: start: 2008

REACTIONS (7)
  - Treatment noncompliance [Unknown]
  - Product quality issue [Unknown]
  - Chest discomfort [Recovering/Resolving]
  - Lung disorder [Recovering/Resolving]
  - Intentional product use issue [Unknown]
  - Drug dose omission [Unknown]
  - Hospitalisation [Unknown]

NARRATIVE: CASE EVENT DATE: 20110117
